FAERS Safety Report 16394595 (Version 2)
Quarter: 2019Q2

REPORT INFORMATION
  Report Type: Spontaneous
  Country: US (occurrence: US)
  Receive Date: 20190605
  Receipt Date: 20190612
  Transmission Date: 20190711
  Serious: Yes (Hospitalization, Other)
  Sender: FDA-Public Use
  Company Number: US-FRESENIUS MEDICAL CARE RENAL THERAPIES GROUP-FMC-1906-000670

PATIENT
  Age: 54 Year
  Sex: Male

DRUGS (10)
  1. PROCRIT [Concomitant]
     Active Substance: ERYTHROPOIETIN
  2. COLACE [Concomitant]
     Active Substance: DOCUSATE SODIUM
     Route: 048
     Dates: start: 20190603
  3. CARAFATE [Concomitant]
     Active Substance: SUCRALFATE
     Dosage: STO P DATE: 03/JUL/2019
     Route: 048
     Dates: start: 20190603
  4. PANTOPRAZOLE [Concomitant]
     Active Substance: PANTOPRAZOLE
  5. SENNA [Concomitant]
     Active Substance: SENNA LEAF\SENNOSIDES\SENNOSIDES A AND B
  6. GLIPIZIDE. [Concomitant]
     Active Substance: GLIPIZIDE
     Dosage: THERAPY STOP DATE: 03/JUL/2019
     Dates: start: 20190603
  7. MIRALAX [Concomitant]
     Active Substance: POLYETHYLENE GLYCOL 3350
  8. MELATONIN [Concomitant]
     Active Substance: MELATONIN
  9. DELFLEX WITH DEXTROSE 2.5% LOW MAGNESIUM LOW CALCIUM [Suspect]
     Active Substance: CALCIUM CHLORIDE\DEXTROSE\MAGNESIUM CHLORIDE\SODIUM CHLORIDE\SODIUM LACTATE
     Indication: END STAGE RENAL DISEASE
     Route: 033
  10. PERCOCET [Concomitant]
     Active Substance: ACETAMINOPHEN\OXYCODONE HYDROCHLORIDE

REACTIONS (3)
  - Peritonitis [Unknown]
  - Hiatus hernia [Unknown]
  - Ileus [Unknown]

NARRATIVE: CASE EVENT DATE: 20190525
